FAERS Safety Report 21373181 (Version 2)
Quarter: 2022Q4

REPORT INFORMATION
  Report Type: Spontaneous
  Country: US (occurrence: US)
  Receive Date: 20220924
  Receipt Date: 20221223
  Transmission Date: 20230113
  Serious: No
  Sender: FDA-Public Use
  Company Number: US-CTI BIOPHARMA-2022US02956

PATIENT

DRUGS (1)
  1. VONJO [Suspect]
     Active Substance: PACRITINIB
     Indication: Myeloproliferative neoplasm
     Dosage: 100 MILLIGRAM, BID
     Route: 048
     Dates: start: 20220622, end: 202209

REACTIONS (6)
  - Abdominal discomfort [Unknown]
  - Decreased appetite [Unknown]
  - Constipation [Unknown]
  - Somnolence [Unknown]
  - Platelet count decreased [Unknown]
  - Drug ineffective [None]

NARRATIVE: CASE EVENT DATE: 20220101
